FAERS Safety Report 7293623-6 (Version None)
Quarter: 2011Q1

REPORT INFORMATION
  Report Type: 
  Country: None (occurrence: None)
  Receive Date: 20110215
  Receipt Date: 20110209
  Transmission Date: 20110831
  Serious: Yes (Life-Threatening, Other)
  Sender: FDA-Public Use
  Company Number: A0900175A

PATIENT
  Age: 35 Year
  Sex: Male
  Weight: 119.5 kg

DRUGS (3)
  1. PREDNISONE [Concomitant]
     Dates: start: 20101220
  2. PROMACTA [Suspect]
     Indication: IDIOPATHIC THROMBOCYTOPENIC PURPURA
     Dosage: 50MG PER DAY
     Route: 048
     Dates: start: 20101125
  3. PROMACTA [Suspect]
     Dosage: 75MG PER DAY
     Route: 048
     Dates: start: 20110111, end: 20110127

REACTIONS (6)
  - THROMBOCYTOPENIA [None]
  - PLATELET COUNT DECREASED [None]
  - DRUG INEFFECTIVE [None]
  - MOUTH HAEMORRHAGE [None]
  - EPISTAXIS [None]
  - PETECHIAE [None]
